FAERS Safety Report 7771175-1 (Version None)
Quarter: 2011Q3

REPORT INFORMATION
  Report Type: 
  Country: None (occurrence: None)
  Receive Date: 20110922
  Receipt Date: 20100908
  Transmission Date: 20111222
  Serious: No
  Sender: FDA-Public Use
  Company Number: US-ASTRAZENECA-2010SE37731

PATIENT
  Sex: Female
  Weight: 51.7 kg

DRUGS (7)
  1. SEROQUEL XR [Suspect]
     Route: 048
     Dates: start: 20100601
  2. ANTIDEPRESSANT [Concomitant]
     Dosage: DAILY
     Route: 048
  3. SEROQUEL XR [Suspect]
     Indication: BIPOLAR DISORDER
     Route: 048
  4. LITHIUM CARBONATE [Concomitant]
     Dosage: DAILY
     Route: 048
  5. PAIN RELIEVERS [Concomitant]
     Dosage: DAILY
     Route: 048
  6. SEROQUEL XR [Suspect]
     Route: 048
     Dates: start: 20100801
  7. CLONAZEPAM [Concomitant]
     Route: 048

REACTIONS (4)
  - AGGRESSION [None]
  - IMPULSIVE BEHAVIOUR [None]
  - ABNORMAL BEHAVIOUR [None]
  - HOSTILITY [None]
